FAERS Safety Report 5944739-5 (Version None)
Quarter: 2008Q4

REPORT INFORMATION
  Report Type: 
  Country: None (occurrence: None)
  Receive Date: 20081107
  Receipt Date: 20081105
  Transmission Date: 20090506
  Serious: Yes (Hospitalization)
  Sender: FDA-Public Use
  Company Number: GB-BRISTOL-MYERS SQUIBB COMPANY-14392492

PATIENT
  Age: 72 Year
  Sex: Female

DRUGS (6)
  1. CYCLOPHOSPHAMIDE [Suspect]
     Indication: GLOMERULONEPHRITIS
     Dosage: RECEIVED 8 DOSES
     Route: 042
  2. CYCLOPHOSPHAMIDE [Suspect]
     Indication: WEGENER'S GRANULOMATOSIS
     Dosage: RECEIVED 8 DOSES
     Route: 042
  3. METHYLPREDNISOLONE 16MG TAB [Suspect]
     Indication: WEGENER'S GRANULOMATOSIS
  4. METHYLPREDNISOLONE 16MG TAB [Suspect]
     Indication: GLOMERULONEPHRITIS
  5. PREDNISOLONE [Suspect]
     Indication: WEGENER'S GRANULOMATOSIS
     Dosage: STARTED WITH 30 MG THEN REDUCED TO 10 MG
     Route: 048
  6. PREDNISOLONE [Suspect]
     Indication: GLOMERULONEPHRITIS
     Dosage: STARTED WITH 30 MG THEN REDUCED TO 10 MG
     Route: 048

REACTIONS (2)
  - BLOOD CREATININE INCREASED [None]
  - CENTRAL NERVOUS SYSTEM LYMPHOMA [None]
